FAERS Safety Report 8268587-9 (Version None)
Quarter: 2012Q2

REPORT INFORMATION
  Report Type: 
  Country: None (occurrence: None)
  Receive Date: 20120409
  Receipt Date: 20120330
  Transmission Date: 20120825
  Serious: Yes (Hospitalization)
  Sender: FDA-Public Use
  Company Number: BE-ABBOTT-12P-013-0901609-00

PATIENT
  Sex: Male

DRUGS (4)
  1. HUMIRA [Suspect]
     Dosage: WEEK 2
     Route: 058
  2. REMICADE [Concomitant]
     Indication: PRODUCT USED FOR UNKNOWN INDICATION
  3. HUMIRA [Suspect]
     Route: 058
     Dates: end: 20081208
  4. HUMIRA [Suspect]
     Indication: CROHN'S DISEASE
     Dosage: BASELINE
     Route: 058
     Dates: start: 20080801, end: 20080801

REACTIONS (1)
  - ANAL FISTULA [None]
